FAERS Safety Report 24958817 (Version 3)
Quarter: 2025Q1

REPORT INFORMATION
  Report Type: Report from Study
  Country: MX (occurrence: MX)
  Receive Date: 20250212
  Receipt Date: 20250321
  Transmission Date: 20250408
  Serious: Yes (Other)
  Sender: TAKEDA
  Company Number: MX-TAKEDA-2025TUS008314

PATIENT
  Age: 76 Year
  Sex: Female
  Weight: 43.5 kg

DRUGS (3)
  1. FRUQUINTINIB [Suspect]
     Active Substance: FRUQUINTINIB
     Indication: Colon cancer stage IV
     Dosage: 4 MILLIGRAM, QD
     Dates: start: 20240905
  2. FRUQUINTINIB [Suspect]
     Active Substance: FRUQUINTINIB
     Dosage: 5 MILLIGRAM, QD
     Dates: start: 20240911, end: 20240920
  3. FRUQUINTINIB [Suspect]
     Active Substance: FRUQUINTINIB
     Dosage: 4 MILLIGRAM, QD
     Dates: start: 20241018, end: 20241123

REACTIONS (20)
  - Carcinoembryonic antigen increased [Unknown]
  - Colon cancer [Unknown]
  - Urine ketone body present [Unknown]
  - Urobilinogen urine increased [Unknown]
  - White blood cells urine positive [Unknown]
  - Urinary sediment present [Unknown]
  - Urinary casts [Unknown]
  - Bacterial test positive [Unknown]
  - Haemoglobin increased [Unknown]
  - Monocyte count increased [Unknown]
  - Chromaturia [Unknown]
  - Blood creatinine decreased [Unknown]
  - Blood glucose increased [Unknown]
  - Haematuria [Unknown]
  - Blood alkaline phosphatase increased [Unknown]
  - Blood magnesium decreased [Unknown]
  - AST/ALT ratio abnormal [Unknown]
  - Bilirubin conjugated increased [Unknown]
  - Proteinuria [Unknown]
  - Mucosal inflammation [Recovered/Resolved]

NARRATIVE: CASE EVENT DATE: 20240917
